FAERS Safety Report 11317236 (Version 1)
Quarter: 2015Q3

REPORT INFORMATION
  Report Type: Spontaneous
  Country: FR (occurrence: FR)
  Receive Date: 20150728
  Receipt Date: 20150728
  Transmission Date: 20151125
  Serious: Yes (Hospitalization)
  Sender: FDA-Public Use
  Company Number: FR-PFIZER INC-2015245978

PATIENT
  Sex: Male

DRUGS (4)
  1. ZOLOFT [Suspect]
     Active Substance: SERTRALINE HYDROCHLORIDE
     Dosage: UNK
     Route: 064
  2. IMOVANE [Suspect]
     Active Substance: ZOPICLONE
     Dosage: UNK
     Route: 064
  3. EFFEXOR LP [Suspect]
     Active Substance: VENLAFAXINE HYDROCHLORIDE
     Dosage: UNK
     Route: 064
  4. STILNOX [Suspect]
     Active Substance: ZOLPIDEM TARTRATE
     Dosage: UNK
     Route: 064

REACTIONS (5)
  - Exposure during breast feeding [Unknown]
  - Neonatal hypoxia [Unknown]
  - Maternal exposure during pregnancy [Unknown]
  - Pulmonary arterial hypertension [Unknown]
  - Bradycardia neonatal [Unknown]

NARRATIVE: CASE EVENT DATE: 20150120
